FAERS Safety Report 9067572 (Version 2)
Quarter: 2013Q2

REPORT INFORMATION
  Report Type: Report from Study
  Country: CA (occurrence: CA)
  Receive Date: 20130129
  Receipt Date: 20130506
  Transmission Date: 20140414
  Serious: Yes (Other)
  Sender: FDA-Public Use
  Company Number: PHHY2013CA007084

PATIENT
  Age: 70 Year
  Sex: Female

DRUGS (2)
  1. EXJADE [Suspect]
     Indication: IRON OVERLOAD
     Dosage: 1000 MG, QD
     Route: 048
     Dates: start: 20121203
  2. EXJADE [Suspect]
     Dosage: 1500 MG, QD
     Route: 048
     Dates: start: 20130408

REACTIONS (7)
  - Pneumonia [Recovered/Resolved]
  - Visual acuity reduced [Unknown]
  - Vision blurred [Unknown]
  - Influenza [Unknown]
  - Malaise [Unknown]
  - Serum ferritin increased [Unknown]
  - Blood iron increased [Unknown]
